FAERS Safety Report 5420429-2 (Version None)
Quarter: 2007Q3

REPORT INFORMATION
  Report Type: 
  Country: None (occurrence: None)
  Receive Date: 20070816
  Receipt Date: 20070807
  Transmission Date: 20080115
  Serious: Yes (Hospitalization)
  Sender: FDA-Public Use
  Company Number: 2007BI016665

PATIENT
  Age: 35 Year
  Sex: Female

DRUGS (2)
  1. AVONEX [Suspect]
     Indication: MULTIPLE SCLEROSIS
     Dosage: 30 UG; QW; IM
     Route: 030
     Dates: start: 20030602, end: 20050201
  2. AVONEX [Suspect]
     Indication: MULTIPLE SCLEROSIS
     Dosage: 30 UG; QW; IM
     Route: 030
     Dates: start: 20060322, end: 20070804

REACTIONS (7)
  - BALANCE DISORDER [None]
  - COGNITIVE DISORDER [None]
  - DYSPHAGIA [None]
  - HYPERSENSITIVITY [None]
  - ILL-DEFINED DISORDER [None]
  - MULTIPLE SCLEROSIS [None]
  - SPEECH DISORDER [None]
